FAERS Safety Report 10382055 (Version 2)
Quarter: 2014Q3

REPORT INFORMATION
  Report Type: Spontaneous
  Country: DZ (occurrence: DZ)
  Receive Date: 20140813
  Receipt Date: 20140819
  Transmission Date: 20150326
  Serious: Yes (Death)
  Sender: FDA-Public Use
  Company Number: DZ-SA-2014SA107790

PATIENT
  Age: 50 Year
  Sex: Female

DRUGS (5)
  1. ANTIHISTAMINES [Concomitant]
     Active Substance: ANTIHISTAMINES NOS
  2. SOLUPRED [Concomitant]
     Active Substance: PREDNISOLONE
     Route: 048
  3. TAXOTERE [Suspect]
     Active Substance: DOCETAXEL
     Indication: BREAST CANCER
     Route: 042
     Dates: start: 20140721, end: 20140721
  4. SOLU-MEDROL [Concomitant]
     Active Substance: METHYLPREDNISOLONE SODIUM SUCCINATE
     Route: 042
  5. TAXOTERE [Suspect]
     Active Substance: DOCETAXEL
     Indication: BREAST CANCER
     Route: 042
     Dates: start: 20140721, end: 20140721

REACTIONS (1)
  - Dyspnoea [Fatal]

NARRATIVE: CASE EVENT DATE: 20140728
